FAERS Safety Report 10037910 (Version 1)
Quarter: 2014Q1

REPORT INFORMATION
  Report Type: Spontaneous
  Country: FI (occurrence: FI)
  Receive Date: 20140326
  Receipt Date: 20140326
  Transmission Date: 20141002
  Serious: Yes (Disabling, Other)
  Sender: FDA-Public Use
  Company Number: FI-MYLANLABS-2014S1006116

PATIENT
  Age: 56 Year
  Sex: Male

DRUGS (6)
  1. PRAVASTATIN [Suspect]
     Indication: CORONARY ARTERY DISEASE
     Route: 065
  2. ASPIRIN [Concomitant]
     Route: 065
  3. EZETIMIBE [Concomitant]
     Route: 065
  4. METOPROLOL [Concomitant]
     Route: 065
  5. LEVOTHYROXINE SODIUM [Concomitant]
     Dosage: 0.1MG, 1.5 X DAILY; ALTERNATING DAYS
     Route: 065
  6. LEVOTHYROXINE SODIUM [Concomitant]
     Dosage: ALTERNATING DAYS
     Route: 065

REACTIONS (3)
  - Myopathy [Recovering/Resolving]
  - Gait disturbance [Unknown]
  - Muscular weakness [Unknown]
